FAERS Safety Report 9009715 (Version 2)
Quarter: 2013Q2

REPORT INFORMATION
  Report Type: Spontaneous
  Country: FR (occurrence: FR)
  Receive Date: 20130110
  Receipt Date: 20130409
  Transmission Date: 20140414
  Serious: Yes (Death)
  Sender: FDA-Public Use
  Company Number: US-009507513-1301USA001844

PATIENT
  Age: 73 Year
  Sex: Female

DRUGS (11)
  1. SINGULAIR [Suspect]
     Indication: BRONCHITIS CHRONIC
     Route: 048
  2. PAROXETINE [Suspect]
     Indication: DEPRESSION
     Route: 048
  3. PLAVIX [Suspect]
     Route: 048
  4. SYMBICORT [Concomitant]
  5. VOGALENE [Concomitant]
  6. PROPOFAN (ACETAMINOPHEN (+) CAFFEINE (+) PROPOXYPHENE HYDROCHLORIDE) [Concomitant]
  7. OROCAL D3 [Concomitant]
  8. ALLOPURINOL [Concomitant]
  9. VERAPAMIL [Concomitant]
  10. EUPRESSYL [Concomitant]
  11. SPIRONOLACTONE [Concomitant]

REACTIONS (2)
  - Haemorrhagic stroke [Fatal]
  - Brain herniation [Fatal]
